FAERS Safety Report 9928030 (Version 1)
Quarter: 2014Q1

REPORT INFORMATION
  Report Type: Spontaneous
  Country: DE (occurrence: DE)
  Receive Date: 20140227
  Receipt Date: 20140227
  Transmission Date: 20141002
  Serious: Yes (Hospitalization)
  Sender: FDA-Public Use
  Company Number: DE-ROCHE-1356389

PATIENT
  Sex: Female

DRUGS (5)
  1. LUCENTIS [Suspect]
     Indication: AGE-RELATED MACULAR DEGENERATION
     Route: 050
     Dates: start: 20080411
  2. METOBETA [Concomitant]
  3. BERLTHYROX [Concomitant]
     Route: 065
     Dates: start: 1996
  4. LIPIDIL [Concomitant]
     Route: 065
     Dates: start: 1998
  5. PANTOZOL (GERMANY) [Concomitant]
     Route: 065
     Dates: start: 1989

REACTIONS (2)
  - Uterine prolapse [Recovering/Resolving]
  - Ophthalmic herpes zoster [Recovered/Resolved]
